FAERS Safety Report 15654811 (Version 1)
Quarter: 2018Q4

REPORT INFORMATION
  Report Type: Spontaneous
  Country: US (occurrence: US)
  Receive Date: 20181126
  Receipt Date: 20181126
  Transmission Date: 20190205
  Serious: No
  Sender: FDA-Public Use
  Company Number: US-MALLINCKRODT-T201704488

PATIENT
  Sex: Female
  Weight: 95 kg

DRUGS (1)
  1. DEXTROAMPHET SACCHARAT, AMPHET ASPARTATE, DEXTROAMPHET SULFATE AND AMPHET SULFAT [Suspect]
     Active Substance: AMPHETAMINE ASPARTATE\AMPHETAMINE SULFATE\DEXTROAMPHETAMINE SACCHARATE\DEXTROAMPHETAMINE SULFATE
     Indication: ATTENTION DEFICIT/HYPERACTIVITY DISORDER
     Dosage: 20 MG, THREE TIMES DAILY
     Route: 048

REACTIONS (6)
  - Hyperphagia [Unknown]
  - Mental disorder [Unknown]
  - Drug ineffective [Unknown]
  - Hunger [Unknown]
  - Nausea [Unknown]
  - Constipation [Unknown]
